FAERS Safety Report 24999224 (Version 2)
Quarter: 2025Q2

REPORT INFORMATION
  Report Type: Spontaneous
  Country: US (occurrence: US)
  Receive Date: 20250222
  Receipt Date: 20250602
  Transmission Date: 20250717
  Serious: No
  Sender: SANOFI AVENTIS
  Company Number: US-SA-2025SA041442

PATIENT
  Age: 56 Year
  Sex: Male

DRUGS (2)
  1. DUPIXENT [Suspect]
     Active Substance: DUPILUMAB
     Indication: Asthma
     Route: 058
     Dates: start: 202410, end: 202410
  2. DUPIXENT [Suspect]
     Active Substance: DUPILUMAB
     Dosage: 300 MG, QOW
     Route: 058
     Dates: start: 2024

REACTIONS (8)
  - Burning sensation [Unknown]
  - Periorbital swelling [Unknown]
  - Eye discharge [Unknown]
  - Skin exfoliation [Unknown]
  - Injection site rash [Unknown]
  - Injection site pruritus [Unknown]
  - Rash [Unknown]
  - Dry eye [Unknown]

NARRATIVE: CASE EVENT DATE: 20241201
